FAERS Safety Report 13911877 (Version 1)
Quarter: 2017Q3

REPORT INFORMATION
  Report Type: Spontaneous
  Country: US (occurrence: US)
  Receive Date: 20170828
  Receipt Date: 20170828
  Transmission Date: 20171127
  Serious: No
  Sender: FDA-Public Use
  Company Number: US-ROCHE-1016076

PATIENT

DRUGS (1)
  1. NUTROPIN [Suspect]
     Active Substance: SOMATROPIN
     Indication: PRODUCT USED FOR UNKNOWN INDICATION
     Dosage: DRUG: NUTROPIN NUS 20 MG, STARTED 3 WEEKS AGO.
     Route: 058

REACTIONS (2)
  - Blister [Recovered/Resolved]
  - Injection site haemorrhage [Recovered/Resolved]
